FAERS Safety Report 10462605 (Version 1)
Quarter: 2014Q3

REPORT INFORMATION
  Report Type: Spontaneous
  Country: US (occurrence: US)
  Receive Date: 20140918
  Receipt Date: 20140918
  Transmission Date: 20150326
  Serious: No
  Sender: FDA-Public Use
  Company Number: US-BAYER-2014-138334

PATIENT
  Age: 32 Year
  Sex: Female

DRUGS (3)
  1. ALEVE [Suspect]
     Active Substance: NAPROXEN SODIUM
     Route: 048
  2. HUMIRA [Suspect]
     Active Substance: ADALIMUMAB
     Dosage: 40 MG, UNK
     Dates: start: 20140627
  3. CYCLOSPORINE. [Concomitant]
     Active Substance: CYCLOSPORINE
     Dosage: UNK
     Dates: start: 201407

REACTIONS (4)
  - Intentional product misuse [Unknown]
  - Migraine [Recovered/Resolved]
  - Blood pressure increased [Unknown]
  - Drug ineffective [None]

NARRATIVE: CASE EVENT DATE: 20140815
